FAERS Safety Report 21511070 (Version 2)
Quarter: 2022Q4

REPORT INFORMATION
  Report Type: Spontaneous
  Country: US (occurrence: US)
  Receive Date: 20221027
  Receipt Date: 20221102
  Transmission Date: 20230112
  Serious: No
  Sender: FDA-Public Use
  Company Number: US-BRISTOL-MYERS SQUIBB COMPANY-2022-127126

PATIENT
  Age: 67 Year
  Sex: Female

DRUGS (2)
  1. ORENCIA [Suspect]
     Active Substance: ABATACEPT
     Indication: Rheumatoid arthritis
     Route: 058
     Dates: start: 20220707
  2. ORENCIA [Suspect]
     Active Substance: ABATACEPT
     Dosage: ROUTE - UNDER THE SKIN
     Route: 058
     Dates: start: 20220707

REACTIONS (3)
  - Headache [Unknown]
  - Ear pain [Unknown]
  - Migraine [Unknown]
